FAERS Safety Report 21278416 (Version 1)
Quarter: 2022Q3

REPORT INFORMATION
  Report Type: Spontaneous
  Country: US (occurrence: US)
  Receive Date: 20220831
  Receipt Date: 20220831
  Transmission Date: 20221027
  Serious: No
  Sender: FDA-Public Use
  Company Number: US-ALKERMES INC.-ALK-2022-004129

PATIENT
  Sex: Female

DRUGS (5)
  1. ARISTADA [Suspect]
     Active Substance: ARIPIPRAZOLE LAUROXIL
     Indication: Bipolar I disorder
     Dosage: 441 MILLIGRAM, Q3MO
     Route: 065
     Dates: start: 20220601, end: 20220601
  2. ARISTADA [Suspect]
     Active Substance: ARIPIPRAZOLE LAUROXIL
     Indication: Psychotic disorder
     Dosage: 441 MILLIGRAM, Q3MO
     Route: 065
     Dates: start: 202202, end: 202202
  3. ARISTADA [Suspect]
     Active Substance: ARIPIPRAZOLE LAUROXIL
     Dosage: 441 MILLIGRAM, Q2MO
     Route: 065
  4. ARISTADA [Suspect]
     Active Substance: ARIPIPRAZOLE LAUROXIL
     Dosage: 441 MILLIGRAM, QMO
     Route: 065
     Dates: start: 2020, end: 2020
  5. LEVOTHYROXINE SODIUM [Concomitant]
     Active Substance: LEVOTHYROXINE SODIUM
     Indication: Product used for unknown indication
     Dosage: UNK, QD
     Route: 065

REACTIONS (12)
  - Off label use [Not Recovered/Not Resolved]
  - Extrasystoles [Not Recovered/Not Resolved]
  - Heart rate irregular [Not Recovered/Not Resolved]
  - Affect lability [Not Recovered/Not Resolved]
  - Suspiciousness [Not Recovered/Not Resolved]
  - Anger [Not Recovered/Not Resolved]
  - Emotional disorder [Not Recovered/Not Resolved]
  - Mood altered [Not Recovered/Not Resolved]
  - Palpitations [Not Recovered/Not Resolved]
  - Bradycardia [Not Recovered/Not Resolved]
  - Tachycardia [Not Recovered/Not Resolved]
  - Agitation [Not Recovered/Not Resolved]
